FAERS Safety Report 7277295-2 (Version None)
Quarter: 2011Q1

REPORT INFORMATION
  Report Type: 
  Country: None (occurrence: None)
  Receive Date: 20110202
  Receipt Date: 20110202
  Transmission Date: 20110831
  Serious: Yes (Other)
  Sender: FDA-Public Use
  Company Number: None

PATIENT
  Sex: Male
  Weight: 68.1303 kg

DRUGS (14)
  1. OMEPRAZOLE [Concomitant]
  2. DOCUSATE [Concomitant]
  3. SIMVASTATIN [Concomitant]
  4. ACETAMINOPHEN [Concomitant]
  5. AMPYRA [Suspect]
     Indication: MULTIPLE SCLEROSIS
     Dosage: 10 MG BID PO
     Route: 048
     Dates: start: 20100907, end: 20101124
  6. ALENDRONATE [Concomitant]
  7. LEVOTHYROXINE [Concomitant]
  8. TAMSULOSIN HCL [Concomitant]
  9. SUPPOSITORY PR [Concomitant]
  10. BISACODYL [Concomitant]
  11. SENNA [Concomitant]
  12. SULFAMETHOXAZOLE AND TRIMETHOPRIM DOUBLE STRENGTH [Concomitant]
  13. UPCAL D [Concomitant]
  14. ASPIRIN [Concomitant]

REACTIONS (1)
  - WEIGHT DECREASED [None]
